FAERS Safety Report 5419243-3 (Version None)
Quarter: 2007Q3

REPORT INFORMATION
  Report Type: 
  Country: None (occurrence: None)
  Receive Date: 20070816
  Receipt Date: 20070816
  Transmission Date: 20080115
  Serious: Yes (Life-Threatening, Hospitalization)
  Sender: FDA-Public Use
  Company Number: None

PATIENT
  Age: 68 Year
  Sex: Female
  Weight: 79.3795 kg

DRUGS (1)
  1. AMBIEN [Suspect]
     Indication: INSOMNIA
     Dosage: 1 AT NIGHT MOUTH
     Route: 048

REACTIONS (6)
  - CLAVICLE FRACTURE [None]
  - CONTUSION [None]
  - FALL [None]
  - HAND FRACTURE [None]
  - HEAD INJURY [None]
  - LACERATION [None]
